FAERS Safety Report 12527700 (Version 1)
Quarter: 2016Q3

REPORT INFORMATION
  Report Type: Spontaneous
  Country: SE (occurrence: SE)
  Receive Date: 20160705
  Receipt Date: 20160705
  Transmission Date: 20161109
  Serious: Yes (Death)
  Sender: FDA-Public Use
  Company Number: SE-JUBILANT CADISTA PHARMACEUTICALS-2016JUB00253

PATIENT

DRUGS (1)
  1. PROCHLORPERAZINE. [Suspect]
     Active Substance: PROCHLORPERAZINE
     Route: 065

REACTIONS (2)
  - Poisoning [Fatal]
  - Completed suicide [Fatal]
